FAERS Safety Report 4611513-1 (Version None)
Quarter: 2005Q1

REPORT INFORMATION
  Report Type: 
  Country: None (occurrence: None)
  Receive Date: 20050316
  Receipt Date: 20050316
  Transmission Date: 20050727
  Serious: No
  Sender: FDA-Public Use
  Company Number: None

PATIENT
  Age: 63 Year
  Sex: Female

DRUGS (3)
  1. METOPROLOL 100MG [Suspect]
     Dosage: 2 TABLETS ONCE DAILY
     Route: 048
     Dates: start: 20050930
  2. HYZAAR [Concomitant]
  3. ALTACE [Concomitant]

REACTIONS (2)
  - BLOOD PRESSURE INCREASED [None]
  - PHARMACEUTICAL PRODUCT COMPLAINT [None]
